FAERS Safety Report 9405271 (Version 2)
Quarter: 2014Q1

REPORT INFORMATION
  Report Type: Spontaneous
  Country: FR (occurrence: FR)
  Receive Date: 20130717
  Receipt Date: 20140214
  Transmission Date: 20141002
  Serious: Yes (Other)
  Sender: FDA-Public Use
  Company Number: FR-JNJFOC-20130707276

PATIENT
  Age: 28 Year
  Sex: Male

DRUGS (2)
  1. INFLIXIMAB, RECOMBINANT [Suspect]
     Indication: ANKYLOSING SPONDYLITIS
     Route: 042
     Dates: start: 2001, end: 2006
  2. ETANERCEPT [Suspect]
     Indication: PRODUCT USED FOR UNKNOWN INDICATION
     Route: 065
     Dates: start: 2006, end: 2009

REACTIONS (9)
  - Memory impairment [Recovering/Resolving]
  - Language disorder [Recovering/Resolving]
  - Disturbance in attention [Recovering/Resolving]
  - Depression [Recovering/Resolving]
  - Abulia [Recovering/Resolving]
  - Anhedonia [Recovering/Resolving]
  - Suicidal ideation [Recovering/Resolving]
  - Decreased appetite [Unknown]
  - Weight decreased [Unknown]
